FAERS Safety Report 15536976 (Version 1)
Quarter: 2018Q4

REPORT INFORMATION
  Report Type: Spontaneous
  Country: FR (occurrence: FR)
  Receive Date: 20181022
  Receipt Date: 20181022
  Transmission Date: 20190205
  Serious: Yes (Death)
  Sender: FDA-Public Use
  Company Number: FR-TEVA-2018-FR-966856

PATIENT
  Age: 19 Year
  Sex: Male

DRUGS (7)
  1. ALPRAZOLAM. [Suspect]
     Active Substance: ALPRAZOLAM
     Dosage: UNKNOWN
     Dates: start: 201804
  2. THERALENE [Suspect]
     Active Substance: TRIMEPRAZINE
     Dosage: UNKNOWN
     Dates: start: 201804
  3. SULPIRIDE [Suspect]
     Active Substance: SULPIRIDE
     Dosage: UNKNOWN
     Route: 065
     Dates: start: 201804
  4. VENLAFAXINE [Suspect]
     Active Substance: VENLAFAXINE HYDROCHLORIDE
     Dosage: UNKNOWN
     Route: 065
     Dates: start: 201804
  5. QUETIAPINE. [Suspect]
     Active Substance: QUETIAPINE
     Dosage: UNKNOWN
     Route: 065
     Dates: start: 201804
  6. ZOLPIDEM [Suspect]
     Active Substance: ZOLPIDEM\ZOLPIDEM TARTRATE
     Dosage: UNKNOWN
     Dates: start: 201804
  7. DAFALGAN CODEINE [Suspect]
     Active Substance: ACETAMINOPHEN\CODEINE PHOSPHATE
     Dosage: UNKNOWN
     Dates: start: 201804

REACTIONS (1)
  - Poisoning deliberate [Fatal]

NARRATIVE: CASE EVENT DATE: 201804
